FAERS Safety Report 8124844-8 (Version None)
Quarter: 2012Q1

REPORT INFORMATION
  Report Type: 
  Country: None (occurrence: None)
  Receive Date: 20120209
  Receipt Date: 20120205
  Transmission Date: 20120608
  Serious: Yes (Other)
  Sender: FDA-Public Use
  Company Number: US-PFIZER INC-2012033029

PATIENT
  Sex: Female

DRUGS (1)
  1. LO/OVRAL-28 [Suspect]

REACTIONS (2)
  - ABDOMINAL PAIN [None]
  - HAEMORRHAGE [None]
